FAERS Safety Report 4821580-8 (Version None)
Quarter: 2005Q4

REPORT INFORMATION
  Report Type: 
  Country: None (occurrence: None)
  Receive Date: 20051103
  Receipt Date: 20051103
  Transmission Date: 20060501
  Serious: Yes (Life-Threatening)
  Sender: FDA-Public Use
  Company Number: None

PATIENT
  Age: 59 Year
  Sex: Male
  Weight: 85.7298 kg

DRUGS (3)
  1. TAXOTERE [Suspect]
     Indication: LUNG NEOPLASM MALIGNANT
     Dosage: 150 MG EVERY 3 WEEKS IV
     Route: 042
     Dates: start: 20051012
  2. TAXOTERE [Suspect]
     Indication: LUNG NEOPLASM MALIGNANT
     Dosage: 150 MG EVERY 3 WEEKS IV
     Route: 042
     Dates: start: 20051102
  3. CARBOPLATIN [Concomitant]

REACTIONS (1)
  - DRUG HYPERSENSITIVITY [None]
